FAERS Safety Report 6140535-7 (Version None)
Quarter: 2009Q2

REPORT INFORMATION
  Report Type: 
  Country: None (occurrence: None)
  Receive Date: 20090402
  Receipt Date: 20090323
  Transmission Date: 20091009
  Serious: Yes (Hospitalization)
  Sender: FDA-Public Use
  Company Number: FR-PFIZER INC-2009183723

PATIENT

DRUGS (9)
  1. ZYVOXID [Suspect]
     Indication: SKIN INFECTION
     Dosage: 600 MG, 2X/DAY
     Route: 042
     Dates: start: 20081023, end: 20081024
  2. MOPRAL [Suspect]
     Dosage: UNK
     Route: 048
     Dates: start: 20081021, end: 20081023
  3. PARACETAMOL [Suspect]
     Route: 048
     Dates: start: 20081021, end: 20081023
  4. PARACETAMOL [Suspect]
     Dates: start: 20081021, end: 20081023
  5. PARACETAMOL [Suspect]
     Route: 042
  6. MORPHINE [Suspect]
     Dates: start: 20081021, end: 20081023
  7. ACUPAN [Suspect]
     Dates: start: 20081021, end: 20081023
  8. LASIX [Concomitant]
  9. DOBUTAMINE HYDROCHLORIDE [Concomitant]

REACTIONS (1)
  - ACUTE GENERALISED EXANTHEMATOUS PUSTULOSIS [None]
